FAERS Safety Report 8925215 (Version 3)
Quarter: 2013Q2

REPORT INFORMATION
  Report Type: Spontaneous
  Country: US (occurrence: US)
  Receive Date: 20121126
  Receipt Date: 20130408
  Transmission Date: 20140414
  Serious: Yes (Hospitalization, Disabling)
  Sender: FDA-Public Use
  Company Number: US-BAYER-2012-121170

PATIENT
  Age: 21 Year
  Sex: Female
  Weight: 63.49 kg

DRUGS (3)
  1. YAZ [Suspect]
     Indication: PREMENSTRUAL SYNDROME
     Dosage: UNK
     Dates: start: 200707, end: 20091130
  2. ALEVE [Concomitant]
     Indication: PAIN
  3. LEVAQUIN [Concomitant]
     Indication: PNEUMONIA
     Dosage: UNK

REACTIONS (12)
  - Deep vein thrombosis [None]
  - Pelvic venous thrombosis [None]
  - Pulmonary embolism [None]
  - Emotional distress [None]
  - Pain [None]
  - Injury [None]
  - General physical health deterioration [None]
  - Anxiety [None]
  - Pain in extremity [None]
  - Local swelling [None]
  - Post-traumatic stress disorder [None]
  - Mental disorder [None]
